FAERS Safety Report 7489392-7 (Version None)
Quarter: 2011Q2

REPORT INFORMATION
  Report Type: 
  Country: None (occurrence: None)
  Receive Date: 20110518
  Receipt Date: 20100624
  Transmission Date: 20111010
  Serious: Yes (Other)
  Sender: FDA-Public Use
  Company Number: DE-GENENTECH-318630

PATIENT
  Age: 73 Year

DRUGS (1)
  1. LUCENTIS [Suspect]
     Indication: MACULAR DEGENERATION
     Dosage: UNK
     Route: 031

REACTIONS (5)
  - LACRIMATION INCREASED [None]
  - EYE DISORDER [None]
  - EYE INFLAMMATION [None]
  - RETINAL SCAR [None]
  - OCULAR HYPERAEMIA [None]
